FAERS Safety Report 17018082 (Version 4)
Quarter: 2019Q4

REPORT INFORMATION
  Report Type: Report from Study
  Country: HK (occurrence: HK)
  Receive Date: 20191111
  Receipt Date: 20191217
  Transmission Date: 20200122
  Serious: Yes (Death, Hospitalization)
  Sender: FDA-Public Use
  Company Number: HK-EXELIXIS-XL18419025009

PATIENT
  Age: 70 Year
  Sex: Male
  Weight: 48.5 kg

DRUGS (9)
  1. PREDNISOLONE. [Concomitant]
     Active Substance: PREDNISOLONE
  2. XL184 [Suspect]
     Active Substance: CABOZANTINIB
     Indication: HEPATOCELLULAR CARCINOMA
     Dosage: 40 MG, QD
     Route: 048
     Dates: start: 20190802
  3. ENTECAVIR. [Concomitant]
     Active Substance: ENTECAVIR
  4. PROPYLTHIOURACIL. [Concomitant]
     Active Substance: PROPYLTHIOURACIL
  5. METHIMAZOLE. [Concomitant]
     Active Substance: METHIMAZOLE
  6. VITAMIN K1 [Concomitant]
     Active Substance: PHYTONADIONE
  7. ATEZOLIZUMAB. [Suspect]
     Active Substance: ATEZOLIZUMAB
     Indication: HEPATOCELLULAR CARCINOMA
     Dosage: 1200 MG, Q3WEEKS
     Route: 042
     Dates: start: 20190802
  8. PANTOPRAZOLE [Concomitant]
     Active Substance: PANTOPRAZOLE
  9. PRAZOSIN. [Concomitant]
     Active Substance: PRAZOSIN

REACTIONS (2)
  - Ascites [Recovering/Resolving]
  - Acute kidney injury [Fatal]

NARRATIVE: CASE EVENT DATE: 20191101
